FAERS Safety Report 8205508 (Version 3)
Quarter: 2015Q4

REPORT INFORMATION
  Report Type: Spontaneous
  Country: CN (occurrence: CN)
  Receive Date: 20111028
  Receipt Date: 20151026
  Transmission Date: 20160305
  Serious: Yes (Hospitalization, Other)
  Sender: FDA-Public Use
  Company Number: CN-JNJFOC-20111008812

PATIENT
  Age: 5 Year
  Sex: Male
  Weight: 35 kg

DRUGS (2)
  1. DAKTAGOLD [Suspect]
     Active Substance: KETOCONAZOLE
     Indication: TINEA PEDIS
     Route: 061
     Dates: start: 20111013, end: 20111014
  2. DAKTAGOLD [Suspect]
     Active Substance: KETOCONAZOLE
     Indication: TINEA PEDIS
     Route: 061
     Dates: start: 2014

REACTIONS (1)
  - Henoch-Schonlein purpura [Recovered/Resolved]

NARRATIVE: CASE EVENT DATE: 20111015
